FAERS Safety Report 7671717-0 (Version None)
Quarter: 2011Q3

REPORT INFORMATION
  Report Type: 
  Country: None (occurrence: None)
  Receive Date: 20110809
  Receipt Date: 20110805
  Transmission Date: 20111222
  Serious: Yes (Life-Threatening, Hospitalization, Other)
  Sender: FDA-Public Use
  Company Number: JP-B.I. PHARMACEUTICALS,INC./RIDGEFIELD-2011-BP-17600NB

PATIENT
  Sex: Male

DRUGS (9)
  1. CARVEDILOL [Concomitant]
     Dosage: 2.5 MG
     Route: 048
  2. LASIX [Concomitant]
     Dosage: 20 MG
     Route: 048
  3. DIGOXIN [Concomitant]
     Dosage: 0.125 MG
     Route: 048
  4. NEUQUINON [Concomitant]
     Dosage: 10 MG
     Route: 048
  5. COMELIAN [Concomitant]
     Dosage: 300 MG
     Route: 048
  6. TORSEMIDE [Concomitant]
     Dosage: 4 MG
     Route: 048
  7. ADENOSINE [Concomitant]
     Route: 048
  8. EXFORGE [Concomitant]
     Route: 048
  9. PRADAXA [Suspect]
     Indication: ATRIAL FIBRILLATION
     Dosage: 300 MG
     Route: 048
     Dates: start: 20110617, end: 20110712

REACTIONS (4)
  - BLOOD PRESSURE DECREASED [None]
  - URTICARIA [None]
  - COAGULATION TEST ABNORMAL [None]
  - NAUSEA [None]
